FAERS Safety Report 7386732-4 (Version None)
Quarter: 2011Q1

REPORT INFORMATION
  Report Type: 
  Country: None (occurrence: None)
  Receive Date: 20110331
  Receipt Date: 20110321
  Transmission Date: 20110831
  Serious: Yes (Hospitalization)
  Sender: FDA-Public Use
  Company Number: IN-JNJFOC-20110310619

PATIENT
  Age: 27 Year
  Sex: Male

DRUGS (1)
  1. ITRACONAZOLE [Suspect]
     Indication: ASPERGILLOSIS
     Route: 048

REACTIONS (4)
  - TOXICITY TO VARIOUS AGENTS [None]
  - RELAPSING FEVER [None]
  - DYSPNOEA [None]
  - SPUTUM PURULENT [None]
